FAERS Safety Report 8249850-4 (Version None)
Quarter: 2012Q2

REPORT INFORMATION
  Report Type: 
  Country: None (occurrence: None)
  Receive Date: 20120402
  Receipt Date: 20120329
  Transmission Date: 20120825
  Serious: Yes (Death, Hospitalization, Other)
  Sender: FDA-Public Use
  Company Number: PHEH2011US00589

PATIENT
  Sex: Male

DRUGS (1)
  1. EXJADE [Suspect]
     Dosage: 500 MG, BID
     Route: 048

REACTIONS (11)
  - MYELODYSPLASTIC SYNDROME [None]
  - URINARY TRACT INFECTION [None]
  - CHILLS [None]
  - DEATH [None]
  - URINARY INCONTINENCE [None]
  - DIARRHOEA [None]
  - PYREXIA [None]
  - OEDEMA PERIPHERAL [None]
  - PNEUMONIA [None]
  - INFLUENZA LIKE ILLNESS [None]
  - UPPER RESPIRATORY TRACT INFECTION [None]
